FAERS Safety Report 8936417 (Version 1)
Quarter: 2012Q4

REPORT INFORMATION
  Report Type: 
  Country: DE (occurrence: DE)
  Receive Date: 20121130
  Receipt Date: 20121130
  Transmission Date: 20130627
  Serious: Yes (Hospitalization, Other)
  Sender: FDA-Public Use
  Company Number: DE-ELI_LILLY_AND_COMPANY-DE201211005626

PATIENT
  Age: 37 Year
  Sex: Female

DRUGS (5)
  1. ZYPREXA VELOTAB [Suspect]
     Dosage: 15 mg, qd
     Route: 048
     Dates: start: 2010
  2. TAVOR [Concomitant]
     Dosage: 1.5 mg, unknown
     Route: 048
     Dates: start: 20120831, end: 20120904
  3. ANAFRANIL [Concomitant]
     Dosage: 25 mg, unknown
     Route: 048
     Dates: start: 20120824, end: 20120829
  4. ANAFRANIL [Concomitant]
     Dosage: 50 mg, unknown
     Route: 048
     Dates: start: 20120830, end: 20120831
  5. ANAFRANIL [Concomitant]
     Dosage: 75 mg, unknown
     Route: 048
     Dates: start: 20120901, end: 20120904

REACTIONS (5)
  - Hyponatraemia [Recovered/Resolved]
  - Rhabdomyolysis [Recovering/Resolving]
  - Convulsion [Unknown]
  - Inappropriate antidiuretic hormone secretion [Unknown]
  - Urinary tract infection [Recovering/Resolving]
